FAERS Safety Report 18218973 (Version 1)
Quarter: 2020Q3

REPORT INFORMATION
  Report Type: Spontaneous
  Country: US (occurrence: US)
  Receive Date: 20200901
  Receipt Date: 20200901
  Transmission Date: 20201103
  Serious: Yes (Hospitalization)
  Sender: FDA-Public Use
  Company Number: US-TEVA-2020-US-1821442

PATIENT
  Age: 6 Month
  Sex: Male

DRUGS (4)
  1. PREDNISOLONE. [Suspect]
     Active Substance: PREDNISOLONE
     Indication: HEPATIC ENZYME INCREASED
     Dosage: 1 MG/KG DAILY; ONE DAY BEFORE ONASEMNOGENE?ABEPARVOVEC DOSING AND FOR 30 DAYS AFTER THE ONASEMNOGENE
     Route: 048
  2. AVXS?101 [Suspect]
     Active Substance: ONASEMNOGENE ABEPARVOVEC
     Indication: SPINAL MUSCULAR ATROPHY
     Dosage: 33ML OF 1.1 X 10 14 VECTOR GENOMES/KG; 6.25 X 10 14 VG
     Route: 050
  3. VITAMIN K [Suspect]
     Active Substance: PHYTONADIONE
     Indication: INTERNATIONAL NORMALISED RATIO INCREASED
     Route: 065
  4. NUSINERSEN [Suspect]
     Active Substance: NUSINERSEN
     Indication: SPINAL MUSCULAR ATROPHY
     Dosage: RECEIVED 4 DOSES
     Route: 065

REACTIONS (5)
  - Cholangitis [Recovered/Resolved]
  - Hepatic failure [Recovered/Resolved]
  - Encephalopathy [Unknown]
  - International normalised ratio increased [Recovering/Resolving]
  - Drug ineffective [Unknown]
